FAERS Safety Report 4465970-4 (Version None)
Quarter: 2004Q4

REPORT INFORMATION
  Report Type: 
  Country: None (occurrence: None)
  Receive Date: 20041001
  Receipt Date: 20041001
  Transmission Date: 20050328
  Serious: Yes (Other)
  Sender: FDA-Public Use
  Company Number: None

PATIENT
  Sex: Female
  Weight: 99.7913 kg

DRUGS (2)
  1. VIOXX [Suspect]
     Indication: ARTHRITIS
     Dosage: 1 TABLET  ONCE DAY  ORAL
     Route: 048
     Dates: start: 19990101, end: 20040601
  2. ADVAIR DISKUS 100/50 [Suspect]
     Indication: ASTHMA
     Dosage: 1 INHALE  TWICE DAY  ORAL
     Route: 048
     Dates: start: 20020101, end: 20040601

REACTIONS (4)
  - ASTHENIA [None]
  - CHEST PAIN [None]
  - CONTRAINDICATION TO MEDICAL TREATMENT [None]
  - RESPIRATION ABNORMAL [None]
